FAERS Safety Report 7313000-9 (Version None)
Quarter: 2011Q1

REPORT INFORMATION
  Report Type: 
  Country: None (occurrence: None)
  Receive Date: 20110225
  Receipt Date: 20110223
  Transmission Date: 20110831
  Serious: Yes (Death)
  Sender: FDA-Public Use
  Company Number: US-ASTRAZENECA-2007UW02159

PATIENT
  Age: 14705 Day
  Sex: Female
  Weight: 158.3 kg

DRUGS (20)
  1. ACTOS [Concomitant]
     Dates: start: 20060301
  2. METFORMIN [Concomitant]
     Dates: start: 20060301
  3. SEROQUEL [Suspect]
     Indication: BIPOLAR DISORDER
     Dosage: 25-200 MG
     Route: 048
     Dates: start: 20001206, end: 20060601
  4. SEROQUEL [Suspect]
     Indication: DEPRESSION
     Dosage: 25-200 MG
     Route: 048
     Dates: start: 20001206, end: 20060601
  5. SEROQUEL [Suspect]
     Dosage: 100 MG-200MG
     Route: 048
     Dates: start: 20001206
  6. HALDOL [Concomitant]
     Dates: start: 19990101, end: 20001101
  7. DEPAKOTE [Concomitant]
     Dates: start: 19990101
  8. ABILIFY [Concomitant]
     Dosage: 10-30 MG
     Dates: start: 20060524
  9. HALDOL [Concomitant]
     Dates: start: 19991221
  10. SEROQUEL [Suspect]
     Dosage: 100 MG-200MG
     Route: 048
     Dates: start: 20001206
  11. LOVENOX [Concomitant]
     Dates: start: 20060524
  12. INSULIN [Concomitant]
  13. DEPAKOTE [Concomitant]
     Dates: start: 19991221
  14. LAMICTAL [Concomitant]
     Dates: start: 20060315
  15. CEPHALEXIN [Concomitant]
     Dates: start: 20010419
  16. FUROSEMIDE [Concomitant]
     Dates: start: 20020427
  17. LISINOPRIL [Concomitant]
     Dates: start: 20060301
  18. ATENOLOL [Concomitant]
     Dates: start: 20060301
  19. GLIPIZIDE [Concomitant]
     Dates: start: 20060301
  20. BENZTROPINE MESYLATE [Concomitant]

REACTIONS (7)
  - VARICOSE ULCERATION [None]
  - HYPERGLYCAEMIA [None]
  - PULMONARY EMBOLISM [None]
  - TYPE 2 DIABETES MELLITUS [None]
  - PAIN IN EXTREMITY [None]
  - DEEP VEIN THROMBOSIS [None]
  - VENOUS INSUFFICIENCY [None]
